FAERS Safety Report 5177365-9 (Version None)
Quarter: 2006Q4

REPORT INFORMATION
  Report Type: 
  Country: None (occurrence: None)
  Receive Date: 20061218
  Receipt Date: 20061212
  Transmission Date: 20070319
  Serious: Yes (Other)
  Sender: FDA-Public Use
  Company Number: 2006UW27618

PATIENT
  Age: 55 Year
  Sex: Male
  Weight: 90.7 kg

DRUGS (7)
  1. SEROQUEL [Suspect]
     Indication: SCHIZOPHRENIA
     Route: 048
     Dates: start: 20060501
  2. SEROQUEL [Suspect]
     Route: 048
  3. SEROQUEL [Suspect]
     Route: 048
  4. MS CONTIN [Suspect]
  5. PERCOCET [Concomitant]
  6. MOTRIN [Concomitant]
  7. NPH INSULIN [Concomitant]

REACTIONS (5)
  - DRUG HYPERSENSITIVITY [None]
  - PRURITUS [None]
  - RASH [None]
  - SWELLING [None]
  - THROMBOSIS [None]
